FAERS Safety Report 4412248-0 (Version None)
Quarter: 2004Q3

REPORT INFORMATION
  Report Type: 
  Country: None (occurrence: None)
  Receive Date: 20040727
  Receipt Date: 20040712
  Transmission Date: 20050211
  Serious: Yes (Other)
  Sender: FDA-Public Use
  Company Number: 201334

PATIENT
  Age: 43 Year
  Sex: Female
  Weight: 63.5036 kg

DRUGS (1)
  1. AVONEX [Suspect]
     Indication: MULTIPLE SCLEROSIS
     Dates: start: 20040711

REACTIONS (6)
  - CHILLS [None]
  - CONFUSIONAL STATE [None]
  - INFLUENZA LIKE ILLNESS [None]
  - INSOMNIA [None]
  - PYREXIA [None]
  - TREMOR [None]
